FAERS Safety Report 9658025 (Version 2)
Quarter: 2013Q4

REPORT INFORMATION
  Report Type: Spontaneous
  Country: DE (occurrence: DE)
  Receive Date: 20131030
  Receipt Date: 20131112
  Transmission Date: 20140711
  Serious: Yes (Hospitalization)
  Sender: FDA-Public Use
  Company Number: DE-B.I. PHARMACEUTICALS,INC./RIDGEFIELD-2013-BI-34477DE

PATIENT
  Age: 84 Year
  Sex: Female
  Weight: 87 kg

DRUGS (20)
  1. PRADAXA [Suspect]
     Indication: ATRIAL FIBRILLATION
     Dosage: 220 MG
     Route: 048
     Dates: start: 20130610
  2. OLANZAPIN [Concomitant]
     Indication: DELUSIONAL DISORDER, UNSPECIFIED TYPE
     Dates: end: 20131006
  3. ATACAND 16 PLUS [Concomitant]
     Dosage: 1 ANZ
  4. NEBILVOLOL 5 [Concomitant]
     Dosage: 1 ANZ
  5. TORASEMID [Concomitant]
     Dosage: 1 ANZ
  6. SEROQUEL 25 [Concomitant]
     Dosage: 2 ANZ
     Dates: start: 20131007
  7. KALINOR RET. [Concomitant]
     Dosage: 1 ANZ
  8. CRESTOR 10 [Concomitant]
     Dosage: 1 ANZ
  9. XALATAN [Concomitant]
     Dosage: 1 ANZ
  10. TRUSOPT [Concomitant]
     Dosage: 2 ANZ
  11. ALPHAGAN AT [Concomitant]
     Dosage: 2 ANZ
  12. PANTOPRAZOL 40 [Concomitant]
     Dosage: 0-0-1
  13. NITROLINGUAL [Concomitant]
     Indication: HYPERTENSION
  14. MOVICOL BAGS [Concomitant]
  15. LAXOBERAL [Concomitant]
     Dosage: 10 DROPS IF 3 DAYS WITHOUT DEFECATION
  16. MICROLIST [Concomitant]
     Dosage: IF 3 DAYS WITHOUT DEFECATION
  17. XALATAN [Concomitant]
     Indication: EYE DISORDER
  18. TRUSOPT [Concomitant]
     Indication: EYE DISORDER
  19. ALPHAGAN AT [Concomitant]
     Indication: EYE DISORDER
  20. DIAZEPAM DROPS [Concomitant]
     Indication: BLOOD PRESSURE INCREASED
     Dosage: 15 DROPS BY EXCITEMENT

REACTIONS (3)
  - Mouth haemorrhage [Unknown]
  - Thrombin time prolonged [Unknown]
  - Haematoma [Recovered/Resolved]
